FAERS Safety Report 5319531-5 (Version None)
Quarter: 2007Q2

REPORT INFORMATION
  Report Type: 
  Country: None (occurrence: None)
  Receive Date: 20070508
  Receipt Date: 20070426
  Transmission Date: 20071010
  Serious: Yes (Hospitalization, Other)
  Sender: FDA-Public Use
  Company Number: AU-PFIZER INC-2007034123

PATIENT
  Age: 27 Year
  Sex: Female

DRUGS (2)
  1. CABERGOLINE [Suspect]
     Indication: RESTLESS LEGS SYNDROME
     Dosage: DAILY DOSE:6MG
     Dates: start: 20020101, end: 20050101
  2. LEVODOPA W/BENSERAZIDE/ [Suspect]
     Indication: RESTLESS LEGS SYNDROME
     Dosage: TEXT:200/50 MG

REACTIONS (5)
  - DRUG TOLERANCE [None]
  - NEUROPSYCHOLOGICAL TEST ABNORMAL [None]
  - PARTNER STRESS [None]
  - PATHOLOGICAL GAMBLING [None]
  - PYELONEPHRITIS [None]
